FAERS Safety Report 18104269 (Version 2)
Quarter: 2020Q3

REPORT INFORMATION
  Report Type: Spontaneous
  Country: US (occurrence: US)
  Receive Date: 20200803
  Receipt Date: 20200904
  Transmission Date: 20201103
  Serious: Yes (Death, Other)
  Sender: FDA-Public Use
  Company Number: US-GILEAD-2020-0488298

PATIENT
  Age: 56 Year
  Sex: Male
  Weight: 105.3 kg

DRUGS (17)
  1. ACETAMINOPHEN. [Concomitant]
     Active Substance: ACETAMINOPHEN
  2. FENTANYL. [Concomitant]
     Active Substance: FENTANYL
  3. INSULIN NPH [INSULIN ISOPHANE BOVINE] [Concomitant]
  4. NOREPINEPHRINE. [Concomitant]
     Active Substance: NOREPINEPHRINE
  5. LACTOBACILLUS [Concomitant]
     Active Substance: LACTOBACILLUS ACIDOPHILUS
  6. VASOPRESSIN. [Concomitant]
     Active Substance: VASOPRESSIN
  7. CISATRACURIUM. [Concomitant]
     Active Substance: CISATRACURIUM
  8. MIDAZOLAM. [Concomitant]
     Active Substance: MIDAZOLAM
  9. TOCILIZUMAB. [Concomitant]
     Active Substance: TOCILIZUMAB
  10. REMDESIVIR. [Suspect]
     Active Substance: REMDESIVIR
     Indication: COVID-19 PNEUMONIA
     Dosage: 100 MG, QD
     Route: 042
     Dates: start: 20200722, end: 20200730
  11. EPOPROSTENOL. [Concomitant]
     Active Substance: EPOPROSTENOL
  12. PANTOPRAZOLE [Concomitant]
     Active Substance: PANTOPRAZOLE
  13. PIPERACILLIN AND TAZOBACTAM [Concomitant]
     Active Substance: PIPERACILLIN SODIUM\TAZOBACTAM SODIUM
  14. SODIUM POLYSTYRENE SULFONATE. [Concomitant]
     Active Substance: SODIUM POLYSTYRENE SULFONATE
  15. ALBUMIN [Concomitant]
     Active Substance: ALBUMIN HUMAN
  16. PHENYLEPHRINE [Concomitant]
     Active Substance: PHENYLEPHRINE HYDROCHLORIDE
  17. PROPOFOL. [Concomitant]
     Active Substance: PROPOFOL

REACTIONS (1)
  - Death [Fatal]

NARRATIVE: CASE EVENT DATE: 20200731
